FAERS Safety Report 13973540 (Version 1)
Quarter: 2017Q3

REPORT INFORMATION
  Report Type: Spontaneous
  Country: US (occurrence: US)
  Receive Date: 20170914
  Receipt Date: 20170914
  Transmission Date: 20171128
  Serious: No
  Sender: FDA-Public Use
  Company Number: US-ASTELLAS-2017US017152

PATIENT
  Sex: Male

DRUGS (1)
  1. XTANDI [Suspect]
     Active Substance: ENZALUTAMIDE
     Indication: PROSTATE CANCER
     Route: 048
     Dates: start: 20170322

REACTIONS (15)
  - Feeling abnormal [Unknown]
  - Back pain [Recovering/Resolving]
  - Fatigue [Recovering/Resolving]
  - Nausea [Recovered/Resolved]
  - Prostatic specific antigen increased [Unknown]
  - Sleep disorder [Not Recovered/Not Resolved]
  - Dyspnoea exertional [Recovering/Resolving]
  - Musculoskeletal pain [Recovered/Resolved]
  - Decreased appetite [Recovering/Resolving]
  - Weight decreased [Recovering/Resolving]
  - Diarrhoea [Unknown]
  - Skin exfoliation [Recovered/Resolved]
  - Muscular weakness [Recovered/Resolved]
  - Pain [Unknown]
  - Nocturia [Not Recovered/Not Resolved]
